FAERS Safety Report 22598081 (Version 1)
Quarter: 2023Q2

REPORT INFORMATION
  Report Type: Spontaneous
  Country: US (occurrence: None)
  Receive Date: 20230614
  Receipt Date: 20230614
  Transmission Date: 20230722
  Serious: No
  Sender: FDA-Public Use
  Company Number: US-MDD US Operations-MDD202208-002405

PATIENT
  Age: 68 Year
  Weight: 91 kg

DRUGS (2)
  1. APOKYN [Suspect]
     Active Substance: APOMORPHINE HYDROCHLORIDE
     Indication: Parkinson^s disease
  2. CARBIDOPA\LEVODOPA [Suspect]
     Active Substance: CARBIDOPA\LEVODOPA
     Indication: Product used for unknown indication

REACTIONS (1)
  - Dyskinesia [Unknown]
